FAERS Safety Report 26115122 (Version 1)
Quarter: 2025Q4

REPORT INFORMATION
  Report Type: Spontaneous
  Country: JP (occurrence: JP)
  Receive Date: 20251203
  Receipt Date: 20251203
  Transmission Date: 20260118
  Serious: Yes (Hospitalization, Other)
  Sender: ALEXION PHARMACEUTICALS
  Company Number: JP-ASTRAZENECA-202511JPN025173JP

PATIENT
  Age: 8 Decade
  Sex: Male

DRUGS (2)
  1. CRESTOR [Suspect]
     Active Substance: ROSUVASTATIN CALCIUM
  2. NEXIUM [Suspect]
     Active Substance: ESOMEPRAZOLE MAGNESIUM

REACTIONS (5)
  - Cardiac failure [Unknown]
  - Myocardial ischaemia [Unknown]
  - Aortic valve stenosis [Unknown]
  - Nocturnal dyspnoea [Unknown]
  - Mitral valve incompetence [Unknown]
